FAERS Safety Report 20330968 (Version 2)
Quarter: 2022Q1

REPORT INFORMATION
  Report Type: Report from Study
  Country: FR (occurrence: FR)
  Receive Date: 20220113
  Receipt Date: 20220120
  Transmission Date: 20220423
  Serious: Yes (Hospitalization)
  Sender: FDA-Public Use
  Company Number: FR-BRISTOL-MYERS SQUIBB COMPANY-BMS-2021-144860

PATIENT
  Sex: Female
  Weight: 54 kg

DRUGS (4)
  1. NIVOLUMAB [Suspect]
     Active Substance: NIVOLUMAB
     Indication: Adenocarcinoma pancreas
     Dosage: 480 MILLIGRAM, Q3WK
     Route: 042
     Dates: start: 20210413, end: 20210413
  2. NIVOLUMAB [Suspect]
     Active Substance: NIVOLUMAB
     Dosage: 480 MILLIGRAM
     Route: 042
     Dates: start: 20210510, end: 20210510
  3. REGORAFENIB [Suspect]
     Active Substance: REGORAFENIB
     Indication: Adenocarcinoma pancreas
     Dosage: 90 MILLIGRAM
     Route: 048
     Dates: start: 20210413, end: 20210430
  4. REGORAFENIB [Suspect]
     Active Substance: REGORAFENIB
     Dosage: 90 MILLIGRAM
     Route: 048
     Dates: start: 20210510, end: 202106

REACTIONS (1)
  - Infusion related reaction [Recovered/Resolved]

NARRATIVE: CASE EVENT DATE: 20210510
